FAERS Safety Report 21129665 (Version 1)
Quarter: 2022Q3

REPORT INFORMATION
  Report Type: Spontaneous
  Country: US (occurrence: None)
  Receive Date: 20220726
  Receipt Date: 20220726
  Transmission Date: 20221027
  Serious: No
  Sender: FDA-Public Use
  Company Number: 2022A245117

PATIENT
  Age: 65 Year
  Weight: 60.3 kg

DRUGS (2)
  1. BRILINTA [Suspect]
     Active Substance: TICAGRELOR
     Indication: Myocardial infarction
     Route: 048
     Dates: start: 20210322
  2. BRILINTA [Suspect]
     Active Substance: TICAGRELOR
     Indication: Thrombectomy
     Route: 048
     Dates: start: 20210322

REACTIONS (3)
  - Lethargy [Recovered/Resolved]
  - Depression [Unknown]
  - Dyspnoea [Unknown]

NARRATIVE: CASE EVENT DATE: 20220101
